FAERS Safety Report 8172857-2 (Version None)
Quarter: 2012Q1

REPORT INFORMATION
  Report Type: 
  Country: None (occurrence: None)
  Receive Date: 20120229
  Receipt Date: 20120229
  Transmission Date: 20120608
  Serious: Yes (Life-Threatening)
  Sender: FDA-Public Use
  Company Number: None

PATIENT
  Age: 41 Year
  Sex: Female
  Weight: 81.646 kg

DRUGS (1)
  1. MACROBID [Suspect]
     Indication: URINARY TRACT INFECTION
     Dosage: 100.0 MG
     Route: 048
     Dates: start: 20120220, end: 20120224

REACTIONS (12)
  - HYPOAESTHESIA [None]
  - NAUSEA [None]
  - TONGUE DISCOLOURATION [None]
  - HEADACHE [None]
  - DYSPNOEA [None]
  - CHEST PAIN [None]
  - DIARRHOEA [None]
  - ASTHENIA [None]
  - PARAESTHESIA [None]
  - DIZZINESS [None]
  - UPPER RESPIRATORY TRACT INFECTION [None]
  - CHEST DISCOMFORT [None]
